FAERS Safety Report 22131160 (Version 1)
Quarter: 2023Q1

REPORT INFORMATION
  Report Type: Spontaneous
  Country: IT (occurrence: IT)
  Receive Date: 20230323
  Receipt Date: 20230323
  Transmission Date: 20230418
  Serious: Yes (Death, Hospitalization, Other)
  Sender: FDA-Public Use
  Company Number: IT-TEVA-2023-IT-2868441

PATIENT
  Age: 6 Decade
  Sex: Male

DRUGS (6)
  1. PEMETREXED [Suspect]
     Active Substance: PEMETREXED
     Indication: Pleural mesothelioma malignant
     Dosage: 6 CYCLES
     Route: 065
     Dates: start: 201908, end: 202001
  2. CARBOPLATIN [Suspect]
     Active Substance: CARBOPLATIN
     Indication: Pleural mesothelioma malignant
     Dosage: 6 CYCLES
     Route: 065
     Dates: start: 201908, end: 202001
  3. ACETYLCYSTEINE [Suspect]
     Active Substance: ACETYLCYSTEINE
     Indication: Pleural mesothelioma malignant
     Dosage: 1 DOSAGE FORMS DAILY;
     Route: 048
  4. VITAMIN C [Suspect]
     Active Substance: ASCORBIC ACID
     Indication: Pleural mesothelioma malignant
     Dosage: 3 DOSAGE FORMS DAILY; VIAL
     Route: 042
  5. VITAMIN D [Suspect]
     Active Substance: VITAMIN D NOS
     Indication: Pleural mesothelioma malignant
     Dosage: VIAL
     Route: 048
  6. DIETARY SUPPLEMENT [Suspect]
     Active Substance: DIETARY SUPPLEMENT
     Indication: Pleural mesothelioma malignant
     Dosage: 2 DOSAGE FORMS DAILY;
     Route: 048

REACTIONS (3)
  - Drug ineffective [Fatal]
  - Acute kidney injury [Recovering/Resolving]
  - Fatigue [Unknown]
